FAERS Safety Report 26054947 (Version 1)
Quarter: 2025Q4

REPORT INFORMATION
  Report Type: Spontaneous
  Country: CN (occurrence: CN)
  Receive Date: 20251117
  Receipt Date: 20251117
  Transmission Date: 20260118
  Serious: Yes (Hospitalization)
  Sender: ELI LILLY AND COMPANY
  Company Number: CN-Merck Healthcare KGaA-2025056712

PATIENT
  Age: 52 Year
  Sex: Male
  Weight: 80 kg

DRUGS (10)
  1. ERBITUX [Suspect]
     Active Substance: CETUXIMAB
     Indication: Rectal cancer
     Dosage: 700 MG, UNK
     Route: 041
     Dates: start: 20251031, end: 20251031
  2. IRINOTECAN HYDROCHLORIDE [Suspect]
     Active Substance: IRINOTECAN HYDROCHLORIDE
     Indication: Rectal cancer
     Dosage: 240 MG, DAILY
     Route: 041
     Dates: start: 20251031, end: 20251031
  3. FLUOROURACIL [Suspect]
     Active Substance: FLUOROURACIL
     Indication: Rectal cancer
     Dosage: 3.25 G, DAILY
     Route: 041
     Dates: start: 20251031, end: 20251031
  4. FLUOROURACIL [Suspect]
     Active Substance: FLUOROURACIL
     Dosage: 0.5 G, DAILY
     Route: 041
     Dates: start: 20251031, end: 20251031
  5. LEUCOVORIN CALCIUM [Suspect]
     Active Substance: LEUCOVORIN CALCIUM
     Indication: Rectal cancer
     Dosage: 0.5 G, DAILY
     Route: 041
     Dates: start: 20251031, end: 20251031
  6. SODIUM CHLORIDE [Concomitant]
     Active Substance: SODIUM CHLORIDE
     Indication: Medication dilution
     Dosage: 500 ML, DAILY
     Route: 041
     Dates: start: 20251031, end: 20251031
  7. SODIUM CHLORIDE [Concomitant]
     Active Substance: SODIUM CHLORIDE
     Dosage: 100 ML, DAILY
     Route: 041
     Dates: start: 20251031, end: 20251031
  8. SODIUM CHLORIDE [Concomitant]
     Active Substance: SODIUM CHLORIDE
     Dosage: 10 ML, DAILY
     Route: 050
     Dates: start: 20251031, end: 20251031
  9. SODIUM CHLORIDE [Concomitant]
     Active Substance: SODIUM CHLORIDE
     Dosage: 250 ML, DAILY
     Route: 041
     Dates: start: 20251031, end: 20251031
  10. SODIUM CHLORIDE [Concomitant]
     Active Substance: SODIUM CHLORIDE
     Dosage: 200 ML, DAILY
     Route: 041
     Dates: start: 20251031, end: 20251031

REACTIONS (1)
  - Platelet count decreased [Not Recovered/Not Resolved]

NARRATIVE: CASE EVENT DATE: 20251102
